FAERS Safety Report 12858569 (Version 1)
Quarter: 2016Q4

REPORT INFORMATION
  Report Type: Spontaneous
  Country: JP (occurrence: JP)
  Receive Date: 20161018
  Receipt Date: 20161018
  Transmission Date: 20170207
  Serious: Yes (Hospitalization)
  Sender: FDA-Public Use
  Company Number: JP-FRESENIUS KABI-FK201607858

PATIENT
  Age: 33 Year
  Sex: Male

DRUGS (6)
  1. ANTIINFLAMMATORY AGENTS, NON-STEROIDS [Suspect]
     Active Substance: UNSPECIFIED INGREDIENT
     Indication: COUGH
  2. NEW QUINOLONE [Suspect]
     Active Substance: UNSPECIFIED INGREDIENT
     Indication: PYREXIA
     Route: 065
  3. NEW QUINOLONE [Suspect]
     Active Substance: UNSPECIFIED INGREDIENT
     Indication: COUGH
  4. ANTIINFLAMMATORY AGENTS, NON-STEROIDS [Suspect]
     Active Substance: UNSPECIFIED INGREDIENT
     Indication: PYREXIA
     Route: 065
  5. PARACETAMOL (MANUFACTURER UNKNOWN) [Suspect]
     Active Substance: ACETAMINOPHEN
     Indication: COUGH
  6. PARACETAMOL (MANUFACTURER UNKNOWN) [Suspect]
     Active Substance: ACETAMINOPHEN
     Indication: PYREXIA
     Route: 065

REACTIONS (2)
  - Tubulointerstitial nephritis [Recovering/Resolving]
  - Acute kidney injury [None]
